FAERS Safety Report 25145039 (Version 1)
Quarter: 2025Q1

REPORT INFORMATION
  Report Type: Spontaneous
  Country: US (occurrence: None)
  Receive Date: 20250331
  Receipt Date: 20250331
  Transmission Date: 20250409
  Serious: Yes (Hospitalization)
  Sender: FDA-CTU
  Company Number: None

PATIENT
  Age: 75 Year

DRUGS (8)
  1. DUPIXENT [Suspect]
     Active Substance: DUPILUMAB
     Indication: Dermatitis atopic
     Route: 058
     Dates: start: 20250205
  2. OTEZLA [Suspect]
     Active Substance: APREMILAST
  3. XELJANZ [Suspect]
     Active Substance: TOFACITINIB CITRATE
  4. ATORVASTATIN [Concomitant]
     Active Substance: ATORVASTATIN
  5. ATORVASTATIN [Concomitant]
     Active Substance: ATORVASTATIN
  6. TRIAMTERENE 37.5MG/ HCTZ 2sMG TABS [Concomitant]
  7. XELJANZ [Concomitant]
     Active Substance: TOFACITINIB CITRATE
  8. OTEZLA [Concomitant]
     Active Substance: APREMILAST

REACTIONS (2)
  - Upper respiratory tract infection [None]
  - Asthma [None]

NARRATIVE: CASE EVENT DATE: 20250324
